FAERS Safety Report 24174047 (Version 3)
Quarter: 2025Q1

REPORT INFORMATION
  Report Type: Report from Study
  Country: JP (occurrence: JP)
  Receive Date: 20240805
  Receipt Date: 20250319
  Transmission Date: 20250409
  Serious: Yes (Death)
  Sender: PFIZER
  Company Number: JP-PFIZER INC-PV202400099778

PATIENT
  Age: 74 Year
  Sex: Male
  Weight: 58 kg

DRUGS (14)
  1. ELRANATAMAB [Suspect]
     Active Substance: ELRANATAMAB
     Indication: Plasma cell myeloma refractory
     Dosage: 12 MG, DAILY
     Route: 058
     Dates: start: 20240729, end: 20240729
  2. FEBUXOSTAT [Concomitant]
     Active Substance: FEBUXOSTAT
  3. BISOPROLOL [Concomitant]
     Active Substance: BISOPROLOL
  4. SULFAMETHOXAZOLE\TRIMETHOPRIM [Concomitant]
     Active Substance: SULFAMETHOXAZOLE\TRIMETHOPRIM
  5. BERBERINE CHLORIDE [Concomitant]
     Active Substance: BERBERINE CHLORIDE
  6. MIYA-BM [Concomitant]
     Active Substance: CLOSTRIDIUM BUTYRICUM SPORES STRAIN M-55
  7. ALBUMIN TANNATE [Concomitant]
     Active Substance: ALBUMIN TANNATE
  8. PANCRELIPASE [Concomitant]
     Active Substance: PANCRELIPASE
  9. ZOVIRAX [Concomitant]
     Active Substance: ACYCLOVIR
  10. LANSOPRAZOLE [Concomitant]
     Active Substance: LANSOPRAZOLE
  11. CALCIUM CHLORIDE\MAGNESIUM CHLORIDE\POTASSIUM CHLORIDE\SODIUM ACETATE\ [Concomitant]
     Active Substance: CALCIUM CHLORIDE\MAGNESIUM CHLORIDE\POTASSIUM CHLORIDE\SODIUM ACETATE\SODIUM CHLORIDE
  12. ACETAMINOPHEN [Concomitant]
     Active Substance: ACETAMINOPHEN
  13. DECADRON [Concomitant]
     Active Substance: DEXAMETHASONE
  14. DEXCHLORPHENIRAMINE [Concomitant]
     Active Substance: DEXCHLORPHENIRAMINE

REACTIONS (2)
  - Plasma cell myeloma [Fatal]
  - Immune effector cell-associated neurotoxicity syndrome [Unknown]

NARRATIVE: CASE EVENT DATE: 20240730
